FAERS Safety Report 23321991 (Version 2)
Quarter: 2024Q3

REPORT INFORMATION
  Report Type: Spontaneous
  Country: US (occurrence: US)
  Receive Date: 20231220
  Receipt Date: 20240813
  Transmission Date: 20241017
  Serious: No
  Sender: GILEAD
  Company Number: US-GILEAD-2023-0655762

PATIENT
  Age: 37 Year
  Sex: Female

DRUGS (3)
  1. LENACAPAVIR [Suspect]
     Active Substance: LENACAPAVIR
     Indication: HIV infection
     Dosage: INJECT 927MG (2 X 1.5ML) UNDER THE SKIN IN 2 SEPARATE SITES EVERY 6 MONTHS
     Route: 065
     Dates: start: 202304
  2. ACETAMINOPHEN [Concomitant]
     Active Substance: ACETAMINOPHEN
     Dosage: UNKNOWN
  3. DIPHENHYDRAMINE [Concomitant]
     Active Substance: DIPHENHYDRAMINE
     Dosage: UNKNOWN

REACTIONS (1)
  - Nausea [Not Recovered/Not Resolved]
